FAERS Safety Report 12257659 (Version 1)
Quarter: 2016Q2

REPORT INFORMATION
  Report Type: Spontaneous
  Country: FR (occurrence: FR)
  Receive Date: 20160412
  Receipt Date: 20160412
  Transmission Date: 20160815
  Serious: Yes (Other)
  Sender: FDA-Public Use
  Company Number: FR-PFIZER INC-2016198469

PATIENT
  Age: 69 Year
  Sex: Male

DRUGS (15)
  1. DIAMICRON [Concomitant]
     Active Substance: GLICLAZIDE
  2. CYMBALTA [Concomitant]
     Active Substance: DULOXETINE HYDROCHLORIDE
     Dosage: 30
  3. GLUCOPHAGE 500 [Concomitant]
     Dosage: UNK
  4. TRIATEC [Concomitant]
     Active Substance: RAMIPRIL
  5. PLAVIX [Concomitant]
     Active Substance: CLOPIDOGREL BISULFATE
  6. XARELTO [Concomitant]
     Active Substance: RIVAROXABAN
  7. TOPALGIC [Concomitant]
     Active Substance: TRAMADOL
  8. MECIR [Concomitant]
     Active Substance: TAMSULOSIN HYDROCHLORIDE
  9. INEXIUM [Concomitant]
     Active Substance: ESOMEPRAZOLE
  10. CRESTOR [Concomitant]
     Active Substance: ROSUVASTATIN CALCIUM
  11. ALLOPURINOL. [Concomitant]
     Active Substance: ALLOPURINOL
  12. FORLAX [Concomitant]
     Active Substance: POLYETHYLENE GLYCOL 4000
  13. LYRICA [Suspect]
     Active Substance: PREGABALIN
     Indication: PAIN
     Dosage: 100 MG, 2X/DAY
     Dates: start: 20160331, end: 20160403
  14. KARDEGIC [Concomitant]
     Active Substance: ASPIRIN LYSINE
  15. DOLIPRANE [Concomitant]
     Active Substance: ACETAMINOPHEN

REACTIONS (5)
  - Motor dysfunction [Unknown]
  - Overdose [Unknown]
  - Unresponsive to stimuli [Unknown]
  - Fall [Unknown]
  - Tremor [Unknown]

NARRATIVE: CASE EVENT DATE: 20160331
